FAERS Safety Report 9467331 (Version 1)
Quarter: 2013Q3

REPORT INFORMATION
  Report Type: Spontaneous
  Country: US (occurrence: US)
  Receive Date: 20130821
  Receipt Date: 20130821
  Transmission Date: 20140515
  Serious: No
  Sender: FDA-Public Use
  Company Number: US-009507513-1308USA006540

PATIENT
  Age: 38 Year
  Sex: Female

DRUGS (2)
  1. BETAMETHASONE [Suspect]
     Dosage: AT 24 WEEKS? GESTATION
     Route: 048
  2. BETAMETHASONE [Suspect]
     Dosage: AT 31 WEEKS AND 5 DAYS^ GESTATION
     Route: 048

REACTIONS (1)
  - Exposure during pregnancy [Recovered/Resolved]
